FAERS Safety Report 10349724 (Version 2)
Quarter: 2014Q3

REPORT INFORMATION
  Report Type: Report from Study
  Country: BR (occurrence: BR)
  Receive Date: 20140730
  Receipt Date: 20140826
  Transmission Date: 20150326
  Serious: Yes (Other)
  Sender: FDA-Public Use
  Company Number: PHHY2014BR092776

PATIENT
  Sex: Female
  Weight: 62 kg

DRUGS (7)
  1. ATENOLOL. [Suspect]
     Active Substance: ATENOLOL
     Indication: HYPERTENSION
     Dosage: 1 UKN, UNK (ONE IN THE MORNIG AND ONE AT NIGHT)
     Route: 048
  2. CLONAZEPAM. [Concomitant]
     Active Substance: CLONAZEPAM
     Indication: SEDATIVE THERAPY
     Dosage: UNK UKN, UNK
  3. CLONAZEPAM. [Concomitant]
     Active Substance: CLONAZEPAM
     Indication: SLEEP DISORDER
  4. SIMVASTATIN. [Concomitant]
     Active Substance: SIMVASTATIN
     Indication: BLOOD CHOLESTEROL INCREASED
     Dosage: 1 UKN, QD
     Route: 048
  5. ENALAPRIL [Suspect]
     Active Substance: ENALAPRIL
     Indication: HYPERTENSION
     Dosage: UNK UKN, UNK
     Route: 048
  6. CAPTOPRIL. [Suspect]
     Active Substance: CAPTOPRIL
     Indication: HYPERTENSION
     Dosage: UNK UKN, UNK
     Route: 048
  7. DIOVAN [Suspect]
     Active Substance: VALSARTAN
     Indication: HYPERTENSION
     Dosage: UNK UNK (160 MG,), QD
     Route: 048

REACTIONS (14)
  - Diabetes mellitus [Recovering/Resolving]
  - Visual impairment [Not Recovered/Not Resolved]
  - Urine potassium abnormal [Unknown]
  - Flank pain [Unknown]
  - Urinary tract infection [Unknown]
  - Memory impairment [Recovering/Resolving]
  - Fear of disease [Unknown]
  - Blood triglycerides increased [Unknown]
  - Ear discomfort [Unknown]
  - Blood pressure increased [Unknown]
  - Conjunctivitis [Unknown]
  - Muscle spasms [Unknown]
  - Myopia [Not Recovered/Not Resolved]
  - Renal disorder [Unknown]
